FAERS Safety Report 11178238 (Version 1)
Quarter: 2015Q2

REPORT INFORMATION
  Report Type: Spontaneous
  Country: US (occurrence: None)
  Receive Date: 20150515
  Receipt Date: 20150515
  Transmission Date: 20150821
  Serious: Yes (Hospitalization, Other)
  Sender: FDA-Public Use
  Company Number: 2014002882

PATIENT
  Age: 58 Year
  Sex: Male
  Weight: 61.3 kg

DRUGS (3)
  1. CIMZIA [Suspect]
     Active Substance: CERTOLIZUMAB PEGOL
     Indication: CROHN^S DISEASE
  2. INSULIN (INSULIN) [Concomitant]
     Active Substance: INSULIN NOS
  3. APRISO (MESALAZINE) [Concomitant]

REACTIONS (3)
  - Drug dose omission [None]
  - Myocardial infarction [None]
  - Memory impairment [None]

NARRATIVE: CASE EVENT DATE: 20140506
